FAERS Safety Report 5906268-4 (Version None)
Quarter: 2008Q4

REPORT INFORMATION
  Report Type: 
  Country: None (occurrence: None)
  Receive Date: 20081002
  Receipt Date: 20080922
  Transmission Date: 20090506
  Serious: Yes (Hospitalization)
  Sender: FDA-Public Use
  Company Number: FR-PFIZER INC-2008080399

PATIENT
  Sex: Female

DRUGS (12)
  1. ALDACTONE [Suspect]
     Indication: HYPERTENSION
     Dosage: TEXT:EVERY DAY
     Route: 048
     Dates: end: 20080710
  2. DIFFU K [Interacting]
     Indication: MINERAL SUPPLEMENTATION
     Dosage: TEXT:EVERY DAY TDD:2 DF
     Route: 048
     Dates: end: 20080710
  3. MODAMIDE [Interacting]
     Indication: HYPERTENSION
     Route: 048
     Dates: end: 20080710
  4. IRBESARTAN [Concomitant]
     Route: 048
     Dates: end: 20080710
  5. PROPRANOLOL [Concomitant]
     Route: 048
  6. DILTIAZEM HYDROCHLORIDE [Concomitant]
     Route: 048
  7. LERCANIDIPINE HYDROCHLORIDE [Concomitant]
     Route: 048
     Dates: end: 20080710
  8. SIMVASTATIN [Concomitant]
     Route: 048
  9. CHOLESTYRAMINE [Concomitant]
     Route: 048
     Dates: end: 20080710
  10. AMITRIPTYLINE HYDROCHLORIDE [Concomitant]
     Route: 048
  11. ALPRAZOLAM [Concomitant]
  12. LORAZEPAM [Concomitant]

REACTIONS (4)
  - CONDUCTION DISORDER [None]
  - DRUG INTERACTION [None]
  - HYPERKALAEMIA [None]
  - QUADRIPARESIS [None]
